FAERS Safety Report 15320875 (Version 1)
Quarter: 2018Q3

REPORT INFORMATION
  Report Type: Spontaneous
  Country: US (occurrence: US)
  Receive Date: 20180827
  Receipt Date: 20180827
  Transmission Date: 20181010
  Serious: Yes (Death, Hospitalization, Other)
  Sender: FDA-Public Use
  Company Number: US-PFIZER INC-2018343797

PATIENT
  Age: 16 Year
  Sex: Female

DRUGS (3)
  1. IBUPROFEN. [Suspect]
     Active Substance: IBUPROFEN
     Indication: SUICIDE ATTEMPT
     Dosage: UNK
     Route: 048
  2. ACETAMINOPHEN. [Suspect]
     Active Substance: ACETAMINOPHEN
     Indication: SUICIDE ATTEMPT
     Dosage: UNK
     Route: 048
  3. VICODIN [Suspect]
     Active Substance: ACETAMINOPHEN\HYDROCODONE BITARTRATE
     Indication: SUICIDE ATTEMPT
     Dosage: UNK
     Route: 048

REACTIONS (13)
  - Drug screen positive [Fatal]
  - Analgesic drug level increased [Fatal]
  - Blood pressure decreased [Fatal]
  - Coma [Fatal]
  - Body temperature decreased [Fatal]
  - Alanine aminotransferase increased [Fatal]
  - Overdose [Fatal]
  - Suicide attempt [Fatal]
  - Heart rate increased [Fatal]
  - Aspartate aminotransferase increased [Fatal]
  - Metabolic acidosis [Fatal]
  - Vomiting [Fatal]
  - Blood methaemoglobin present [Fatal]
